FAERS Safety Report 14587948 (Version 3)
Quarter: 2018Q3

REPORT INFORMATION
  Report Type: Spontaneous
  Country: US (occurrence: US)
  Receive Date: 20180301
  Receipt Date: 20180719
  Transmission Date: 20181010
  Serious: Yes (Other)
  Sender: FDA-Public Use
  Company Number: US-PFIZER INC-2018083394

PATIENT
  Age: 63 Year
  Sex: Female

DRUGS (2)
  1. IBRANCE [Suspect]
     Active Substance: PALBOCICLIB
     Dosage: 125 MG, CYCLIC (ONCE A DAY (QD) FOR X21 DAYS, THEN 7 DAYS OFF)
     Route: 048
     Dates: start: 20180105
  2. IBRANCE [Suspect]
     Active Substance: PALBOCICLIB
     Dosage: 100 MG, CYCLIC(Q DAY X 21, 7 DAYS OFF)

REACTIONS (5)
  - Fatigue [Unknown]
  - Gastric ulcer haemorrhage [Unknown]
  - Alopecia [Unknown]
  - Nausea [Unknown]
  - Full blood count decreased [Unknown]
